FAERS Safety Report 6688445-0 (Version None)
Quarter: 2010Q2

REPORT INFORMATION
  Report Type: 
  Country: None (occurrence: None)
  Receive Date: 20100420
  Receipt Date: 20100409
  Transmission Date: 20101027
  Serious: Yes (Other)
  Sender: FDA-Public Use
  Company Number: US-AMGEN-QUU399056

PATIENT
  Sex: Female

DRUGS (18)
  1. ENBREL [Suspect]
     Indication: RHEUMATOID ARTHRITIS
     Route: 058
     Dates: end: 20091123
  2. CIPRO [Concomitant]
  3. NIASPAN [Concomitant]
  4. PREDNISONE [Concomitant]
  5. ADVIL [Concomitant]
  6. ASPIRIN [Concomitant]
  7. CALCIUM [Concomitant]
  8. COENZYME Q10 [Concomitant]
  9. FISH OIL [Concomitant]
  10. GLUCOSAMINE [Concomitant]
  11. MIACALCIN [Concomitant]
  12. MULTI-VITAMINS [Concomitant]
  13. NORVASC [Concomitant]
  14. OMEPRAZOLE [Concomitant]
  15. VITAMIN D3 [Concomitant]
  16. VYTORIN [Concomitant]
  17. ARTIFICIAL TEARS [Concomitant]
  18. PROTONIX [Concomitant]

REACTIONS (31)
  - ABDOMINAL DISCOMFORT [None]
  - ALOPECIA [None]
  - ANAEMIA [None]
  - ANTINUCLEAR ANTIBODY POSITIVE [None]
  - BACK PAIN [None]
  - BALANCE DISORDER [None]
  - BRONCHITIS [None]
  - CITROBACTER INFECTION [None]
  - CONTUSION [None]
  - DECREASED APPETITE [None]
  - DIARRHOEA [None]
  - DISCOMFORT [None]
  - DIVERTICULITIS [None]
  - FATIGUE [None]
  - JOINT CONTRACTURE [None]
  - LARYNGITIS [None]
  - MALAISE [None]
  - MUSCULOSKELETAL STIFFNESS [None]
  - NASOPHARYNGITIS [None]
  - NECK PAIN [None]
  - NEPHRITIS [None]
  - NOCTURIA [None]
  - NODAL OSTEOARTHRITIS [None]
  - RASH [None]
  - RAYNAUD'S PHENOMENON [None]
  - RED BLOOD CELL SEDIMENTATION RATE INCREASED [None]
  - RENAL FAILURE [None]
  - RHEUMATOID ARTHRITIS [None]
  - SYNOVITIS [None]
  - URINARY TRACT INFECTION BACTERIAL [None]
  - WEIGHT DECREASED [None]
